FAERS Safety Report 9157328 (Version 1)
Quarter: 2013Q1

REPORT INFORMATION
  Report Type: Spontaneous
  Country: US (occurrence: None)
  Receive Date: 20130213
  Receipt Date: 20130213
  Transmission Date: 20140127
  Serious: Yes (Other)
  Sender: FDA-Public Use
  Company Number: COM-001007

PATIENT
  Age: 56 None
  Sex: Female
  Weight: 72.58 kg

DRUGS (1)
  1. SAFETY COATED ASPIRIN [Suspect]
     Indication: PROPHYLAXIS
     Route: 048
     Dates: start: 20130201, end: 20130201

REACTIONS (11)
  - Hyperhidrosis [None]
  - Tremor [None]
  - Abdominal pain [None]
  - Muscle spasms [None]
  - Dizziness postural [None]
  - Fall [None]
  - Head injury [None]
  - Loss of consciousness [None]
  - Disorientation [None]
  - Haematochezia [None]
  - Decreased appetite [None]
